FAERS Safety Report 4871775-2 (Version None)
Quarter: 2006Q1

REPORT INFORMATION
  Report Type: 
  Country: None (occurrence: None)
  Receive Date: 20060104
  Receipt Date: 20051221
  Transmission Date: 20060701
  Serious: Yes (Hospitalization)
  Sender: FDA-Public Use
  Company Number: PHBS2005JP19045

PATIENT
  Age: 43 Year
  Sex: Female

DRUGS (2)
  1. NORVASC [Concomitant]
     Dosage: 5 MG/DAY
     Route: 048
     Dates: start: 20051205, end: 20051215
  2. DIOVAN [Suspect]
     Indication: HYPERTENSION
     Dosage: 80 MG/DAY
     Route: 048
     Dates: start: 20051115, end: 20051128

REACTIONS (5)
  - BLOOD CREATINE PHOSPHOKINASE INCREASED [None]
  - ECZEMA [None]
  - OEDEMA [None]
  - PYREXIA [None]
  - RHABDOMYOLYSIS [None]
